FAERS Safety Report 16812801 (Version 1)
Quarter: 2019Q3

REPORT INFORMATION
  Report Type: Spontaneous
  Country: US (occurrence: US)
  Receive Date: 20190916
  Receipt Date: 20190916
  Transmission Date: 20191005
  Serious: No
  Sender: FDA-Public Use
  Company Number: US-JAZZ-2019-US-000669

PATIENT
  Age: 18 Year
  Sex: Male
  Weight: 79 kg

DRUGS (1)
  1. ERWINAZE [Suspect]
     Active Substance: ASPARAGINASE ERWINIA CHRYSANTHEMI
     Indication: PRODUCT USED FOR UNKNOWN INDICATION
     Dosage: 48000 IU, ON MONDAYS, WEDNESDAY AND FRIDAY
     Route: 030

REACTIONS (1)
  - Incorrect dose administered [Unknown]

NARRATIVE: CASE EVENT DATE: 20190109
